FAERS Safety Report 7166197-8 (Version None)
Quarter: 2010Q4

REPORT INFORMATION
  Report Type: 
  Country: None (occurrence: None)
  Receive Date: 20101216
  Receipt Date: 20101208
  Transmission Date: 20110411
  Serious: Yes (Other)
  Sender: FDA-Public Use
  Company Number: US-MPIJNJ-2010-05310

PATIENT
  Sex: Female
  Weight: 100.7 kg

DRUGS (28)
  1. VELCADE [Suspect]
     Indication: MULTIPLE MYELOMA
     Dosage: 1.0 MG/M2, CYCLIC
     Dates: start: 20050316, end: 20070920
  2. DEXAMETHASONE [Suspect]
     Indication: MULTIPLE MYELOMA
     Dosage: 40 MG, CYCLIC
     Dates: start: 20050319
  3. DEXAMETHASONE [Suspect]
     Dosage: 20 MG, CYCLIC
     Dates: end: 20100205
  4. THALIDOMIDE [Suspect]
     Indication: MULTIPLE MYELOMA
     Dosage: 200 MG, CYCLIC
     Dates: start: 20050319
  5. THALIDOMIDE [Suspect]
     Dosage: 50 MG, CYCLIC
     Dates: end: 20100912
  6. CISPLATIN [Suspect]
     Indication: MULTIPLE MYELOMA
     Dosage: 10 MG/M2, CYCLIC
     Dates: start: 20050319
  7. CISPLATIN [Suspect]
     Dosage: 7.5 MG/M2, CYCLIC
     Dates: end: 20060408
  8. DOXORUBICIN [Suspect]
     Indication: MULTIPLE MYELOMA
     Dosage: 10 MG/M2, CYCLIC
     Dates: start: 20050319
  9. DOXORUBICIN [Suspect]
     Dosage: 7.5 MG/M2, CYCLIC
     Dates: end: 20060408
  10. CYCLOPHOSPHAMIDE [Suspect]
     Indication: MULTIPLE MYELOMA
     Dosage: 400 MG/M2, CYCLIC
     Dates: start: 20050319
  11. CYCLOPHOSPHAMIDE [Suspect]
     Dosage: 300 MG/M2, CYCLIC
     Dates: end: 20060408
  12. ETOPOSIDE [Suspect]
     Indication: MULTIPLE MYELOMA
     Dosage: 40 MG/M2, CYCLIC
     Dates: start: 20050319
  13. ETOPOSIDE [Suspect]
     Dosage: 30 MG/M2, CYCLIC
     Dates: end: 20060408
  14. MELPHALAN [Suspect]
     Indication: MULTIPLE MYELOMA
     Dosage: 200 MG/M2, UNK
     Dates: start: 20050706, end: 20050706
  15. MELPHALAN [Suspect]
     Dosage: 200 MG/M2, UNK
     Dates: start: 20050921, end: 20050921
  16. ACYCLOVIR [Concomitant]
     Indication: PRODUCT USED FOR UNKNOWN INDICATION
     Dosage: 400 MG, BID
  17. ASPIRIN [Concomitant]
     Indication: PRODUCT USED FOR UNKNOWN INDICATION
     Dosage: 81 MG, QD
  18. LYRICA [Concomitant]
     Indication: PRODUCT USED FOR UNKNOWN INDICATION
     Dosage: 100 MG, QD
  19. MICARDIS [Concomitant]
     Indication: PRODUCT USED FOR UNKNOWN INDICATION
     Dosage: 20 MG, QD
     Route: 048
  20. POTASSIUM CHLORIDE [Concomitant]
     Indication: PRODUCT USED FOR UNKNOWN INDICATION
     Dosage: 20 MEQ, BID
     Route: 048
  21. MAGNESIUM OXIDE [Concomitant]
     Indication: PRODUCT USED FOR UNKNOWN INDICATION
     Dosage: 400 MG, BID
     Route: 048
  22. CYANOCOBALAMIN [Concomitant]
     Indication: PRODUCT USED FOR UNKNOWN INDICATION
     Dosage: UNK U/ML, UNK
     Route: 030
  23. FOLIC ACID [Concomitant]
     Indication: PRODUCT USED FOR UNKNOWN INDICATION
     Dosage: 1 MG, QD
  24. MULTIVITAMIN AND MINERAL [Concomitant]
     Indication: PRODUCT USED FOR UNKNOWN INDICATION
     Dosage: UNK
     Route: 048
  25. TAMIFLU [Concomitant]
     Indication: PRODUCT USED FOR UNKNOWN INDICATION
     Dosage: 75 MG, QD
     Route: 048
  26. LEVAQUIN [Concomitant]
     Indication: PRODUCT USED FOR UNKNOWN INDICATION
     Dosage: 500 MG, QD
  27. NEUPOGEN [Concomitant]
     Indication: WHITE BLOOD CELL COUNT DECREASED
     Dosage: UNK
     Route: 058
  28. PROCRIT                            /00909301/ [Concomitant]
     Indication: HAEMOGLOBIN DECREASED
     Route: 058

REACTIONS (1)
  - ACUTE MYELOID LEUKAEMIA [None]
